FAERS Safety Report 4693301-3 (Version None)
Quarter: 2005Q2

REPORT INFORMATION
  Report Type: 
  Country: None (occurrence: None)
  Receive Date: 20050617
  Receipt Date: 20050608
  Transmission Date: 20051028
  Serious: Yes (Other)
  Sender: FDA-Public Use
  Company Number: JP-GLAXOSMITHKLINE-B0384454A

PATIENT
  Sex: Female

DRUGS (1)
  1. PAXIL [Suspect]
     Route: 048
     Dates: start: 20050528

REACTIONS (6)
  - AMIMIA [None]
  - ANOREXIA [None]
  - BRADYKINESIA [None]
  - FALL [None]
  - INSOMNIA [None]
  - TREMOR [None]
